FAERS Safety Report 6675635-6 (Version None)
Quarter: 2010Q2

REPORT INFORMATION
  Report Type: 
  Country: None (occurrence: None)
  Receive Date: 20100409
  Receipt Date: 20100408
  Transmission Date: 20101027
  Serious: Yes (Death)
  Sender: FDA-Public Use
  Company Number: GB-B.I. PHARMACEUTICALS,INC./RIDGEFIELD-2008-BP-08875BP

PATIENT
  Age: 3 Month
  Sex: Male

DRUGS (9)
  1. VIRAMUNE [Suspect]
     Indication: HIV INFECTION
     Route: 048
  2. VIRAMUNE [Suspect]
     Indication: ANTIVIRAL PROPHYLAXIS
     Route: 064
  3. COMBIVIR [Suspect]
     Indication: HIV INFECTION
     Route: 064
  4. KALETRA [Suspect]
     Indication: HIV INFECTION
     Route: 064
  5. ZIDOVUDINE [Suspect]
     Indication: HIV INFECTION
     Route: 064
  6. ZIDOVUDINE [Suspect]
     Indication: ANTIVIRAL PROPHYLAXIS
     Route: 065
  7. SEPTRIN [Suspect]
     Indication: DRUG USE FOR UNKNOWN INDICATION
     Route: 065
  8. LAMIVUDINE [Suspect]
     Indication: ANTIVIRAL PROPHYLAXIS
     Route: 065
  9. LAMIVUDINE [Suspect]
     Indication: PROPHYLAXIS AGAINST HIV INFECTION

REACTIONS (1)
  - DEATH NEONATAL [None]
